FAERS Safety Report 24330172 (Version 1)
Quarter: 2024Q3

REPORT INFORMATION
  Report Type: Spontaneous
  Country: GB (occurrence: GB)
  Receive Date: 20240917
  Receipt Date: 20240917
  Transmission Date: 20241017
  Serious: Yes (Other)
  Sender: CHATTEM
  Company Number: None

PATIENT
  Sex: Female

DRUGS (7)
  1. ALLEGRA [Suspect]
     Active Substance: FEXOFENADINE HYDROCHLORIDE
     Indication: Adverse drug reaction
     Dosage: 180 MG TWICE A DAY
  2. ALLEGRA [Suspect]
     Active Substance: FEXOFENADINE HYDROCHLORIDE
     Indication: Solar urticaria
  3. FAMOTIDINE [Suspect]
     Active Substance: FAMOTIDINE
     Indication: Adverse drug reaction
     Dosage: 40MG ON
  4. FAMOTIDINE [Suspect]
     Active Substance: FAMOTIDINE
     Indication: Solar urticaria
  5. MONTELUKAST [Concomitant]
     Active Substance: MONTELUKAST SODIUM
     Indication: Adverse drug reaction
  6. MONTELUKAST [Concomitant]
     Active Substance: MONTELUKAST SODIUM
     Indication: Solar urticaria
  7. NYTOL HERBAL UNWIND [Concomitant]
     Indication: Adverse drug reaction

REACTIONS (3)
  - Hypertension [Recovered/Resolved]
  - Heart rate irregular [Recovered/Resolved]
  - Dizziness [Recovered/Resolved]
